FAERS Safety Report 12385966 (Version 1)
Quarter: 2016Q2

REPORT INFORMATION
  Report Type: Spontaneous
  Country: US (occurrence: US)
  Receive Date: 20160519
  Receipt Date: 20160519
  Transmission Date: 20160815
  Serious: Yes (Other)
  Sender: FDA-Public Use
  Company Number: US-ENDO PHARMACEUTICALS INC.-2016-002708

PATIENT
  Age: 18 Year
  Sex: Male

DRUGS (6)
  1. PHENOBARBITAL TABLETS [Concomitant]
     Indication: SEIZURE
     Dosage: 1 1/2 TABLETS BY MOUTH EVERY MORNING AND EVENING
     Route: 048
     Dates: start: 20081222
  2. FYCOMPA [Concomitant]
     Active Substance: PERAMPANEL
     Indication: SEIZURE
     Route: 050
     Dates: start: 20150212
  3. KEPPRA [Concomitant]
     Active Substance: LEVETIRACETAM
     Indication: SEIZURE
     Route: 050
  4. LORAZEPAM TABLETS 2MG [Suspect]
     Active Substance: LORAZEPAM
     Indication: EPILEPSY
     Route: 050
     Dates: start: 20160404, end: 20160413
  5. DILANTIN [Concomitant]
     Active Substance: PHENYTOIN
     Indication: SEIZURE
     Dosage: 100MG IN AM, 150MG IN PM
     Route: 050
     Dates: start: 20100224
  6. DIASTAT [Concomitant]
     Active Substance: DIAZEPAM
     Indication: SEIZURE
     Dosage: AS NEEDED EVERY FIVE MINUTES
     Route: 054
     Dates: start: 20160331

REACTIONS (2)
  - Seizure [Recovering/Resolving]
  - Off label use [Recovered/Resolved]

NARRATIVE: CASE EVENT DATE: 20160404
